FAERS Safety Report 20824568 (Version 1)
Quarter: 2022Q2

REPORT INFORMATION
  Report Type: Spontaneous
  Country: LT (occurrence: LT)
  Receive Date: 20220513
  Receipt Date: 20220513
  Transmission Date: 20220720
  Serious: Yes (Hospitalization, Other)
  Sender: FDA-Public Use
  Company Number: LT-TAKEDA-2022TUS030435

PATIENT
  Age: 56 Year
  Sex: Male

DRUGS (9)
  1. MESALAMINE [Suspect]
     Active Substance: MESALAMINE
     Indication: Colitis ulcerative
     Dosage: 2 GRAM, QD
     Route: 048
  2. MESALAMINE [Suspect]
     Active Substance: MESALAMINE
     Dosage: 4 GRAM, QD
     Route: 048
  3. HYDROCHLOROTHIAZIDE [Concomitant]
     Active Substance: HYDROCHLOROTHIAZIDE
     Indication: Hypertension
     Dosage: 5 MILLIGRAM, QD
     Route: 065
  4. VERAPAMIL [Concomitant]
     Active Substance: VERAPAMIL HYDROCHLORIDE
     Indication: Hypertension
     Dosage: 240 MILLIGRAM, QD
     Route: 048
  5. AMLODIPINE [Concomitant]
     Active Substance: AMLODIPINE BESYLATE
     Dosage: 20 MILLIGRAM, QD
     Route: 065
  6. OLMESARTAN [Concomitant]
     Active Substance: OLMESARTAN
     Indication: Hypertension
     Dosage: 12.5 MILLIGRAM, QD
     Route: 065
  7. NEBIVOLOL [Concomitant]
     Active Substance: NEBIVOLOL
     Dosage: 5 MILLIGRAM, QD
     Route: 065
  8. AZATHIOPRINE [Concomitant]
     Active Substance: AZATHIOPRINE
  9. PREDNISOLONE [Concomitant]
     Active Substance: PREDNISOLONE
     Dosage: 40 MILLIGRAM, QD
     Route: 065

REACTIONS (3)
  - Acute kidney injury [Recovered/Resolved]
  - Tubulointerstitial nephritis [Recovered/Resolved]
  - General physical health deterioration [Recovered/Resolved]
